FAERS Safety Report 11318663 (Version 5)
Quarter: 2017Q1

REPORT INFORMATION
  Report Type: Report from Study
  Country: CA (occurrence: CA)
  Receive Date: 20150729
  Receipt Date: 20170331
  Transmission Date: 20170428
  Serious: Yes (Other)
  Sender: FDA-Public Use
  Company Number: CA-ROCHE-ITM201506IM018355

PATIENT
  Age: 77 Year
  Sex: Female
  Weight: 52.2 kg

DRUGS (11)
  1. BACTRIM [Concomitant]
     Active Substance: SULFAMETHOXAZOLE\TRIMETHOPRIM
  2. AZATHIOPRINE. [Concomitant]
     Active Substance: AZATHIOPRINE
  3. ESBRIET [Suspect]
     Active Substance: PIRFENIDONE
     Indication: IDIOPATHIC PULMONARY FIBROSIS
     Route: 048
     Dates: start: 20150313
  4. ESBRIET [Suspect]
     Active Substance: PIRFENIDONE
     Route: 048
     Dates: start: 20150327
  5. ALENDRONATE [Concomitant]
     Active Substance: ALENDRONATE SODIUM
  6. CORTISONE [Concomitant]
     Active Substance: CORTISONE\HYDROCORTISONE
  7. MONOCOR [Concomitant]
     Active Substance: BISOPROLOL FUMARATE
  8. ESBRIET [Suspect]
     Active Substance: PIRFENIDONE
     Route: 048
     Dates: start: 20150320
  9. ATIVAN [Concomitant]
     Active Substance: LORAZEPAM
  10. PANTOLOC [Concomitant]
     Active Substance: PANTOPRAZOLE SODIUM
  11. ACETYLSALICYLIC ACID [Concomitant]
     Active Substance: ASPIRIN

REACTIONS (9)
  - Pulmonary function test abnormal [Unknown]
  - Dyspnoea [Unknown]
  - Vomiting [Recovered/Resolved]
  - Nausea [Recovered/Resolved]
  - Hypertension [Not Recovered/Not Resolved]
  - Dizziness [Recovered/Resolved]
  - Heart rate increased [Not Recovered/Not Resolved]
  - Fatigue [Unknown]
  - Photosensitivity reaction [Unknown]

NARRATIVE: CASE EVENT DATE: 20150717
